FAERS Safety Report 17692452 (Version 1)
Quarter: 2020Q2

REPORT INFORMATION
  Report Type: Spontaneous
  Country: US (occurrence: US)
  Receive Date: 20200421
  Receipt Date: 20200421
  Transmission Date: 20200714
  Serious: No
  Sender: FDA-Public Use
  Company Number: None

PATIENT
  Age: 76 Year
  Sex: Male
  Weight: 72.9 kg

DRUGS (18)
  1. HYDROCORTISONE. [Concomitant]
     Active Substance: HYDROCORTISONE
  2. DEXAMETHASONE. [Concomitant]
     Active Substance: DEXAMETHASONE
  3. GLEOSTINE [Suspect]
     Active Substance: LOMUSTINE
     Indication: BRAIN NEOPLASM
     Dosage: ?          OTHER FREQUENCY:EVERY 6 WEEKS;?
     Route: 048
     Dates: start: 20200318, end: 20200421
  4. LANTUS [Concomitant]
     Active Substance: INSULIN GLARGINE
  5. KEPPRA 750MG, ORAL [Concomitant]
  6. INSULIN LISPRO [Concomitant]
     Active Substance: INSULIN LISPRO
  7. CLONAZEPAM. [Concomitant]
     Active Substance: CLONAZEPAM
  8. CHOLECALCIFEROL [Concomitant]
     Active Substance: CHOLECALCIFEROL
  9. MIDODRINE [Concomitant]
     Active Substance: MIDODRINE
  10. PRESERVISION, ORAL [Concomitant]
  11. XARELTO [Concomitant]
     Active Substance: RIVAROXABAN
  12. PRANDIN [Concomitant]
     Active Substance: REPAGLINIDE
  13. METFORMIN [Concomitant]
     Active Substance: METFORMIN HYDROCHLORIDE
  14. CEPHALEXIN. [Concomitant]
     Active Substance: CEPHALEXIN
  15. XANAX [Concomitant]
     Active Substance: ALPRAZOLAM
  16. VIMPAT [Concomitant]
     Active Substance: LACOSAMIDE
  17. RAPAFLO [Concomitant]
     Active Substance: SILODOSIN
  18. POTASSIUM CHLORIDE CRYSTALS [Concomitant]

REACTIONS (1)
  - Hospice care [None]

NARRATIVE: CASE EVENT DATE: 20200421
